FAERS Safety Report 22105506 (Version 9)
Quarter: 2025Q1

REPORT INFORMATION
  Report Type: Report from Study
  Country: KR (occurrence: KR)
  Receive Date: 20230317
  Receipt Date: 20250118
  Transmission Date: 20250408
  Serious: Yes (Hospitalization, Other)
  Sender: CELLTRION
  Company Number: KR-CELLTRION INC.-2022KR018660

PATIENT

DRUGS (22)
  1. HERZUMA [Suspect]
     Active Substance: TRASTUZUMAB-PKRB
     Indication: Breast cancer
     Route: 042
     Dates: start: 20211109, end: 20220805
  2. HERZUMA [Suspect]
     Active Substance: TRASTUZUMAB-PKRB
     Route: 042
     Dates: end: 20230303
  3. HERZUMA [Suspect]
     Active Substance: TRASTUZUMAB-PKRB
     Route: 042
     Dates: end: 20231228
  4. HERZUMA [Suspect]
     Active Substance: TRASTUZUMAB-PKRB
     Route: 042
     Dates: end: 20240228
  5. HERZUMA [Suspect]
     Active Substance: TRASTUZUMAB-PKRB
     Route: 042
     Dates: end: 20240314
  6. HERZUMA [Suspect]
     Active Substance: TRASTUZUMAB-PKRB
     Route: 042
     Dates: start: 20241226
  7. HERZUMA [Suspect]
     Active Substance: TRASTUZUMAB-PKRB
     Route: 042
     Dates: end: 20250108
  8. HERZUMA [Suspect]
     Active Substance: TRASTUZUMAB-PKRB
     Route: 042
     Dates: start: 20250115
  9. RIBOCICLIB [Suspect]
     Active Substance: RIBOCICLIB
     Indication: Breast cancer
     Route: 048
     Dates: start: 20211109, end: 20220805
  10. RIBOCICLIB [Suspect]
     Active Substance: RIBOCICLIB
     Route: 048
     Dates: end: 20230303
  11. RIBOCICLIB [Suspect]
     Active Substance: RIBOCICLIB
     Route: 048
     Dates: end: 20231228
  12. RIBOCICLIB [Suspect]
     Active Substance: RIBOCICLIB
     Route: 048
     Dates: start: 20231213
  13. RIBOCICLIB [Suspect]
     Active Substance: RIBOCICLIB
     Route: 048
     Dates: start: 20240228
  14. ALDACTONE [Concomitant]
     Active Substance: SPIRONOLACTONE
     Indication: Hypertension
     Route: 048
     Dates: start: 2016
  15. NORVASC [Concomitant]
     Active Substance: AMLODIPINE BESYLATE
     Indication: Hypertension
     Route: 048
     Dates: start: 2016
  16. DENOSUMAB [Concomitant]
     Active Substance: DENOSUMAB
     Indication: Metastases to bone
     Dosage: 120 MILLIGRAM (1 VIAL, EVERY 4 WEEKS)
     Route: 058
     Dates: start: 20211109
  17. ATORVASTATIN CALCIUM [Concomitant]
     Active Substance: ATORVASTATIN CALCIUM
     Indication: Hyperlipidaemia
     Route: 048
     Dates: start: 20240103
  18. FOLIC ACID [Concomitant]
     Active Substance: FOLIC ACID
     Indication: Osteopenia
     Route: 048
     Dates: start: 20240108
  19. FILGRASTIM [Concomitant]
     Active Substance: FILGRASTIM
     Indication: Neutrophil count decreased
     Route: 058
     Dates: start: 20240106, end: 20240106
  20. CELECOXIB [Concomitant]
     Active Substance: CELECOXIB
     Indication: Femoral neck fracture
     Route: 048
     Dates: start: 20240116
  21. ORPHENADRINE CITRATE [Concomitant]
     Active Substance: ORPHENADRINE CITRATE
     Indication: Femoral neck fracture
     Route: 048
     Dates: start: 20240130
  22. SARPOGRELATE HYDROCHLORIDE [Concomitant]
     Active Substance: SARPOGRELATE HYDROCHLORIDE
     Indication: Femoral neck fracture
     Route: 048
     Dates: start: 20241203

REACTIONS (4)
  - Lymphadenitis [Recovering/Resolving]
  - Lymphadenitis [Recovered/Resolved]
  - Femoral neck fracture [Not Recovered/Not Resolved]
  - Post procedural inflammation [Not Recovered/Not Resolved]

NARRATIVE: CASE EVENT DATE: 20230305
